FAERS Safety Report 14938675 (Version 2)
Quarter: 2020Q2

REPORT INFORMATION
  Report Type: Report from Study
  Country: CA (occurrence: CA)
  Receive Date: 20180525
  Receipt Date: 20200629
  Transmission Date: 20200713
  Serious: Yes (Other)
  Sender: FDA-Public Use
  Company Number: CA-JNJFOC-20180421148

PATIENT
  Age: 13 Year
  Sex: Male
  Weight: 79 kg

DRUGS (4)
  1. REMICADE [Suspect]
     Active Substance: INFLIXIMAB
     Route: 042
  2. REMICADE [Suspect]
     Active Substance: INFLIXIMAB
     Route: 042
  3. REMICADE [Suspect]
     Active Substance: INFLIXIMAB
     Indication: COLITIS ULCERATIVE
     Route: 042
     Dates: start: 20160105
  4. REMICADE [Suspect]
     Active Substance: INFLIXIMAB
     Dosage: RECEIVED 24TH INFUSION OF INFLIXIMAB ON 12-JUN-2020 OF 700 MG
     Route: 042
     Dates: start: 20180224

REACTIONS (5)
  - Product use issue [Unknown]
  - Drug level above therapeutic [Unknown]
  - General physical health deterioration [Not Recovered/Not Resolved]
  - Off label use [Unknown]
  - Haematochezia [Recovering/Resolving]

NARRATIVE: CASE EVENT DATE: 20160105
